FAERS Safety Report 6165319-5 (Version None)
Quarter: 2009Q2

REPORT INFORMATION
  Report Type: 
  Country: None (occurrence: None)
  Receive Date: 20090421
  Receipt Date: 20090421
  Transmission Date: 20091009
  Serious: Yes (Other)
  Sender: FDA-Public Use
  Company Number: None

PATIENT
  Age: 50 Year
  Sex: Female
  Weight: 66.2252 kg

DRUGS (1)
  1. LEVAQUIN [Suspect]
     Indication: BRONCHITIS
     Dosage: 500 MG ONCE DAILY PO
     Route: 048
     Dates: start: 20090315, end: 20090316

REACTIONS (11)
  - AGITATION [None]
  - ANXIETY [None]
  - CHILLS [None]
  - DELUSION [None]
  - DEPRESSION [None]
  - FLASHBACK [None]
  - HYPERHIDROSIS [None]
  - PARANOIA [None]
  - SUICIDAL IDEATION [None]
  - THINKING ABNORMAL [None]
  - VERBAL ABUSE [None]
